FAERS Safety Report 9620842 (Version 2)
Quarter: 2013Q4

REPORT INFORMATION
  Report Type: Spontaneous
  Country: US (occurrence: US)
  Receive Date: 20131015
  Receipt Date: 20131017
  Transmission Date: 20140711
  Serious: Yes (Hospitalization)
  Sender: FDA-Public Use
  Company Number: US-ROCHE-1289001

PATIENT
  Age: 41 Year
  Sex: Male

DRUGS (9)
  1. XOLAIR [Suspect]
     Indication: ASTHMA
     Dosage: 150MG AT 2 DIFFERENT SITES
     Route: 058
  2. EPIPEN [Concomitant]
  3. PROAIR (UNITED STATES) [Concomitant]
     Route: 055
  4. ADVAIR DISKUS [Concomitant]
     Dosage: 500/50
     Route: 065
  5. SINGULAIR [Concomitant]
     Route: 065
  6. FLAGYL [Concomitant]
  7. MORPHINE [Concomitant]
  8. PHENERGAN [Concomitant]
  9. REGLAN [Concomitant]

REACTIONS (5)
  - Abdominal pain [Recovered/Resolved]
  - Diarrhoea [Recovered/Resolved]
  - Nausea [Recovered/Resolved]
  - Vomiting [Recovered/Resolved]
  - Colitis [Recovered/Resolved]
